FAERS Safety Report 7875395-7 (Version None)
Quarter: 2011Q4

REPORT INFORMATION
  Report Type: 
  Country: None (occurrence: None)
  Receive Date: 20111031
  Receipt Date: 20111020
  Transmission Date: 20120403
  Serious: Yes (Other)
  Sender: FDA-Public Use
  Company Number: ES-GLAXOSMITHKLINE-B0759146A

PATIENT
  Age: 70 Year
  Sex: Male

DRUGS (4)
  1. DUTASTERIDE/TAMSULOSIN HYDROCHLORIDE [Suspect]
     Indication: BENIGN PROSTATIC HYPERPLASIA
     Route: 048
     Dates: start: 20110113, end: 20110201
  2. EZETIMIBE [Concomitant]
     Indication: HYPERCHOLESTEROLAEMIA
     Route: 048
  3. DILTIAZEM HCL [Concomitant]
     Indication: HYPERTENSION
     Route: 048
  4. SINTROM [Concomitant]
     Indication: PROPHYLAXIS
     Route: 048

REACTIONS (3)
  - RETROGRADE EJACULATION [None]
  - TESTICULAR PAIN [None]
  - MALE SEXUAL DYSFUNCTION [None]
